FAERS Safety Report 9481978 (Version 1)
Quarter: 2013Q3

REPORT INFORMATION
  Report Type: Spontaneous
  Country: CH (occurrence: CH)
  Receive Date: 20130828
  Receipt Date: 20130828
  Transmission Date: 20140515
  Serious: Yes (Hospitalization)
  Sender: FDA-Public Use
  Company Number: CH-AMGEN-CHESP2013059252

PATIENT
  Age: 64 Year
  Sex: Female

DRUGS (15)
  1. PROLIA [Suspect]
     Indication: OSTEOPOROSIS
     Dosage: 60 MG, Q6MO
     Route: 058
     Dates: start: 201112, end: 20130301
  2. FOSAMAX [Suspect]
     Indication: OSTEOPOROSIS
     Dosage: 70 MG, QWK
     Route: 048
     Dates: start: 200503, end: 200705
  3. BONVIVA [Suspect]
     Indication: OSTEOPOROSIS
     Dosage: 3 MG, Q3MO
     Route: 042
     Dates: start: 200705, end: 200803
  4. ACLASTA [Suspect]
     Indication: OSTEOPOROSIS
     Dosage: 5 MG, Q12MO
     Route: 042
     Dates: start: 200905, end: 201104
  5. VITAMIN D                          /00318501/ [Concomitant]
     Indication: OSTEOPOROSIS
     Dosage: 300000 IU, ONE TIME DOSE
     Route: 030
     Dates: start: 201303
  6. CALCIMAGON D3 [Concomitant]
  7. CLEXANE [Concomitant]
     Dosage: 40 MG, UNK
  8. MOTILIUM                           /00498201/ [Concomitant]
     Dosage: 10 MG, TID
  9. NEXIUM                             /01479302/ [Concomitant]
     Dosage: 40 MG, QD
  10. GYNOTARDYFERON [Concomitant]
     Dosage: 1 DF, QD
  11. SUPRADYN                           /01742801/ [Concomitant]
     Dosage: 1 DF, QD
  12. DAFALGAN [Concomitant]
     Dosage: 1 G, TID
  13. LIVIAL [Concomitant]
     Dosage: 205 MG, QD
  14. OMEGA 3                            /06852001/ [Concomitant]
     Dosage: 1 DF, QD
  15. SIRDALUD [Concomitant]
     Dosage: 2 MG, BID
     Route: 048

REACTIONS (1)
  - Impaired healing [Not Recovered/Not Resolved]
